FAERS Safety Report 9335695 (Version 1)
Quarter: 2013Q2

REPORT INFORMATION
  Report Type: Spontaneous
  Country: US (occurrence: US)
  Receive Date: 20130605
  Receipt Date: 20130605
  Transmission Date: 20140414
  Serious: Yes (Other)
  Sender: FDA-Public Use
  Company Number: US-PFIZER INC-2013167376

PATIENT
  Sex: Female

DRUGS (1)
  1. DETROL LA [Suspect]
     Dosage: 4 MG, UNK
     Dates: start: 20130528, end: 20130601

REACTIONS (2)
  - Rash [Not Recovered/Not Resolved]
  - Swelling face [Not Recovered/Not Resolved]
